FAERS Safety Report 8589289-5 (Version None)
Quarter: 2012Q3

REPORT INFORMATION
  Report Type: 
  Country: None (occurrence: None)
  Receive Date: 20120813
  Receipt Date: 20120420
  Transmission Date: 20120928
  Serious: No
  Sender: FDA-Public Use
  Company Number: US-009507513-2012SP008343

PATIENT

DRUGS (1)
  1. DR. SCHOLL'S FREEZE AWAY COMMON + PLANTAR WART REMOVER [Suspect]
     Indication: PRODUCT USED FOR UNKNOWN INDICATION
     Dosage: UNK UNK, UNKNOWN
     Route: 061
     Dates: start: 20120115

REACTIONS (11)
  - BLOOD PRESSURE INCREASED [None]
  - CHOKING SENSATION [None]
  - FALL [None]
  - DYSPNOEA [None]
  - PARAESTHESIA [None]
  - PALLOR [None]
  - LIP SWELLING [None]
  - SWOLLEN TONGUE [None]
  - PHARYNGEAL OEDEMA [None]
  - HEART RATE INCREASED [None]
  - ACCIDENTAL EXPOSURE [None]
